FAERS Safety Report 8127637-0 (Version None)
Quarter: 2011Q4

REPORT INFORMATION
  Report Type: 
  Country: None (occurrence: None)
  Receive Date: 20111227
  Receipt Date: 20111102
  Transmission Date: 20120403
  Serious: No
  Sender: FDA-Public Use
  Company Number: PHEH2011US08452

PATIENT
  Sex: Female

DRUGS (6)
  1. GILENYA [Suspect]
     Indication: MULTIPLE SCLEROSIS
     Dosage: 0.5 MG, QD
     Dates: start: 20111005
  2. LISINOPRIL/HCTZ (HYDROCHLOROTHIAZIDE, LISINOPRIL) [Concomitant]
  3. ATENOLOL [Concomitant]
  4. VITAMIN D [Concomitant]
  5. EFFEXOR [Concomitant]
  6. SYNTHROID [Concomitant]

REACTIONS (2)
  - FEELING ABNORMAL [None]
  - FATIGUE [None]
